FAERS Safety Report 7439998-6 (Version None)
Quarter: 2011Q2

REPORT INFORMATION
  Report Type: 
  Country: None (occurrence: None)
  Receive Date: 20110427
  Receipt Date: 20110421
  Transmission Date: 20111010
  Serious: Yes (Other)
  Sender: FDA-Public Use
  Company Number: PHHY2011US34522

PATIENT
  Sex: Male

DRUGS (1)
  1. DESFERAL [Suspect]
     Indication: IRON OVERLOAD
     Route: 042

REACTIONS (3)
  - HEPATIC FAILURE [None]
  - CARDIOMYOPATHY [None]
  - SERUM FERRITIN INCREASED [None]
